FAERS Safety Report 4440986-2 (Version None)
Quarter: 2004Q3

REPORT INFORMATION
  Report Type: 
  Country: None (occurrence: None)
  Receive Date: 20040728
  Receipt Date: 20040415
  Transmission Date: 20050211
  Serious: No
  Sender: FDA-Public Use
  Company Number: USA040465077

PATIENT
  Age: 48 Year
  Sex: Female

DRUGS (7)
  1. STRATTERA [Suspect]
     Indication: ATTENTION DEFICIT/HYPERACTIVITY DISORDER
     Dosage: 40 MG
     Dates: start: 20040414
  2. BLOOD PRESSURE MEDICATION [Concomitant]
  3. THYROID MEDICATION [Concomitant]
  4. PAXIL [Concomitant]
  5. LEXAPRO [Concomitant]
  6. DESIPRAMINE HCL [Concomitant]
  7. TRAZODONE HCL [Concomitant]

REACTIONS (1)
  - APATHY [None]
